FAERS Safety Report 13449589 (Version 2)
Quarter: 2017Q2

REPORT INFORMATION
  Report Type: Spontaneous
  Country: FR (occurrence: FR)
  Receive Date: 20170417
  Receipt Date: 20170428
  Transmission Date: 20170830
  Serious: Yes (Hospitalization, Other)
  Sender: FDA-Public Use
  Company Number: FR-NORTH CREEK PHARMACEUTICALS LLC-2017VTS00616

PATIENT
  Age: 16 Year
  Sex: Female

DRUGS (4)
  1. TRANEXAMIC ACID. [Suspect]
     Active Substance: TRANEXAMIC ACID
     Indication: POSTPARTUM HAEMORRHAGE
     Dosage: 1 G, TWICE, BOLUSES 3 HOURS APART
     Route: 065
  2. LABILE BLOOD PRODUCTS [Concomitant]
     Dosage: 4 UNITS PACKED RBCS, 4 UNITS FFP
     Route: 065
  3. SULPROSTONE [Concomitant]
     Active Substance: SULPROSTONE
     Dosage: 500 MG, TWICE, 1 HOUR APART
     Route: 065
  4. FIBRINOGEN [Concomitant]
     Active Substance: FIBRINOGEN HUMAN
     Dosage: 3 G, UNK
     Route: 065

REACTIONS (3)
  - Renal failure [Not Recovered/Not Resolved]
  - Vena cava thrombosis [Unknown]
  - Renal cortical necrosis [Unknown]
